FAERS Safety Report 6176650-1 (Version None)
Quarter: 2009Q2

REPORT INFORMATION
  Report Type: 
  Country: None (occurrence: None)
  Receive Date: 20090501
  Receipt Date: 20090423
  Transmission Date: 20091009
  Serious: Yes (Disabling)
  Sender: FDA-Public Use
  Company Number: SE-ABBOTT-09P-150-0569714-00

PATIENT
  Age: 31 Year
  Sex: Female

DRUGS (4)
  1. ERGENYL TABLETS [Suspect]
     Indication: EPILEPSY
     Route: 048
  2. CIPRAMIL [Concomitant]
     Indication: DRUG USE FOR UNKNOWN INDICATION
  3. IMOVANE [Concomitant]
     Indication: DRUG USE FOR UNKNOWN INDICATION
  4. TRIOBE [Concomitant]
     Indication: DRUG USE FOR UNKNOWN INDICATION

REACTIONS (4)
  - AMNESIA [None]
  - BRADYPHRENIA [None]
  - DEPRESSION [None]
  - EXPRESSIVE LANGUAGE DISORDER [None]
